FAERS Safety Report 22142657 (Version 1)
Quarter: 2023Q1

REPORT INFORMATION
  Report Type: Spontaneous
  Country: MK (occurrence: None)
  Receive Date: 20230327
  Receipt Date: 20230327
  Transmission Date: 20230417
  Serious: Yes (Other)
  Sender: FDA-Public Use
  Company Number: MK-ROCHE-3316898

PATIENT
  Age: 49 Year
  Sex: Female

DRUGS (14)
  1. ACTEMRA [Suspect]
     Active Substance: TOCILIZUMAB
     Indication: Rheumatoid arthritis
     Route: 058
     Dates: start: 202011
  2. METHOTREXATE [Concomitant]
     Active Substance: METHOTREXATE
     Dosage: 2X3 TBL., 1 PER WEEK
  3. METHOTREXATE [Concomitant]
     Active Substance: METHOTREXATE
  4. FOLIC ACID [Concomitant]
     Active Substance: FOLIC ACID
  5. CHLOROQUINE [Concomitant]
     Active Substance: CHLOROQUINE
  6. PREDNISOLONE [Concomitant]
     Active Substance: PREDNISOLONE
     Dosage: 1X2, TBL
  7. PANTOPRAZOLE [Concomitant]
     Active Substance: PANTOPRAZOLE
  8. IBUPROFEN [Concomitant]
     Active Substance: IBUPROFEN
     Dosage: 2-3 TIMES IN A DAY
  9. DICLOFENAC [Concomitant]
     Active Substance: DICLOFENAC
     Dosage: 2X1
  10. MUPIROCIN [Concomitant]
     Active Substance: MUPIROCIN
  11. DIOSMIN [Concomitant]
     Active Substance: DIOSMIN
     Dosage: 1X1
  12. DAPSONE [Concomitant]
     Active Substance: DAPSONE
     Dosage: 3X1
  13. ACENOCOUMAROL [Concomitant]
     Active Substance: ACENOCOUMAROL
     Dosage: 1X1/4;TBL
  14. PREGABALIN [Concomitant]
     Active Substance: PREGABALIN
     Dosage: 1X1

REACTIONS (4)
  - Peripheral swelling [Recovered/Resolved]
  - Pain in extremity [Recovered/Resolved]
  - Erythema [Recovered/Resolved]
  - Pyoderma gangrenosum [Recovered/Resolved]
